FAERS Safety Report 18920595 (Version 1)
Quarter: 2021Q1

REPORT INFORMATION
  Report Type: Report from Study
  Country: PE (occurrence: PE)
  Receive Date: 20210222
  Receipt Date: 20210222
  Transmission Date: 20210420
  Serious: Yes (Life-Threatening)
  Sender: FDA-Public Use
  Company Number: PE-TAKEDA-2021TUS010747

PATIENT
  Sex: Male

DRUGS (1)
  1. IXAZOMIB [Suspect]
     Active Substance: IXAZOMIB
     Indication: PLASMA CELL MYELOMA
     Dosage: 4 MILLIGRAM, 1/WEEK
     Route: 048
     Dates: start: 20200217

REACTIONS (4)
  - Blood creatinine increased [Unknown]
  - Haemoglobin decreased [Unknown]
  - Blood uric acid increased [Unknown]
  - Organ failure [Unknown]
